FAERS Safety Report 7112389-3 (Version None)
Quarter: 2010Q4

REPORT INFORMATION
  Report Type: 
  Country: None (occurrence: None)
  Receive Date: 20101119
  Receipt Date: 20101005
  Transmission Date: 20110411
  Serious: No
  Sender: FDA-Public Use
  Company Number: A0885017A

PATIENT
  Age: 71 Year
  Sex: Male

DRUGS (2)
  1. AVODART [Suspect]
     Dosage: 5MG ALTERNATE DAYS
     Route: 048
     Dates: start: 20100101, end: 20100101
  2. NO CONCURRENT MEDICATION [Concomitant]

REACTIONS (3)
  - DYSURIA [None]
  - ILL-DEFINED DISORDER [None]
  - PROSTATITIS [None]
